FAERS Safety Report 9862256 (Version 2)
Quarter: 2014Q1

REPORT INFORMATION
  Report Type: Spontaneous
  Country: US (occurrence: US)
  Receive Date: 20140203
  Receipt Date: 20140203
  Transmission Date: 20141002
  Serious: No
  Sender: FDA-Public Use
  Company Number: US-OPTIMER-20130377

PATIENT
  Age: 83 Year
  Sex: Female

DRUGS (9)
  1. DIFICID [Suspect]
     Indication: CLOSTRIDIUM DIFFICILE COLITIS
     Dosage: 200 MG, BID
     Route: 048
  2. DIFICID [Suspect]
     Dosage: 200 MG, BID
     Route: 048
  3. DIFICID [Suspect]
     Dosage: 200 MG, UNK
     Dates: start: 20130907, end: 20130917
  4. LOPRESSOR [Concomitant]
     Dosage: UNK
  5. REMERON [Concomitant]
     Dosage: UNK
  6. TYLENOL [Concomitant]
     Dosage: UNK
  7. HYDRALAZINE [Concomitant]
     Dosage: UNK
  8. HYDROCODONE W/ACETAMINOPHEN [Concomitant]
     Dosage: UNK
  9. ZOFRAN [Concomitant]
     Dosage: UNK

REACTIONS (4)
  - Clostridium difficile colitis [Recovered/Resolved]
  - Disease recurrence [Recovered/Resolved]
  - Asthenia [Recovered/Resolved]
  - Decreased appetite [Recovered/Resolved]
